FAERS Safety Report 6305501-7 (Version None)
Quarter: 2009Q3

REPORT INFORMATION
  Report Type: 
  Country: None (occurrence: None)
  Receive Date: 20090807
  Receipt Date: 20090722
  Transmission Date: 20100115
  Serious: Yes (Death, Life-Threatening, Hospitalization)
  Sender: FDA-Public Use
  Company Number: 2009001609

PATIENT
  Age: 56 Year
  Sex: Male
  Weight: 50 kg

DRUGS (7)
  1. ERLOTINIB (ERLOTINIB) (TABLET) (ERLOTINIB) [Suspect]
     Indication: NON-SMALL CELL LUNG CANCER
     Dosage: 150 MG, QD, ORAL
     Route: 048
     Dates: start: 20090202, end: 20090219
  2. PEMETREXED [Suspect]
     Indication: NON-SMALL CELL LUNG CANCER
     Dosage: 500 MG/M2, Q3W;
     Dates: start: 20090202
  3. FOLIC ACID [Concomitant]
  4. VITAMIN B12 [Concomitant]
  5. CODEINUM [Concomitant]
  6. METAMIZOLE (METAMIZOLE) [Concomitant]
  7. PREDNISOLONE [Concomitant]

REACTIONS (10)
  - CANDIDIASIS [None]
  - MALIGNANT NEOPLASM PROGRESSION [None]
  - NON-SMALL CELL LUNG CANCER [None]
  - PLATELET COUNT DECREASED [None]
  - PNEUMONIA [None]
  - POLYNEUROPATHY [None]
  - PULMONARY OEDEMA [None]
  - SPUTUM CULTURE POSITIVE [None]
  - STAPHYLOCOCCAL INFECTION [None]
  - WHITE BLOOD CELL COUNT DECREASED [None]
